FAERS Safety Report 15566779 (Version 1)
Quarter: 2018Q4

REPORT INFORMATION
  Report Type: Spontaneous
  Country: CH (occurrence: CH)
  Receive Date: 20181030
  Receipt Date: 20181030
  Transmission Date: 20190205
  Serious: Yes (Hospitalization, Other)
  Sender: FDA-Public Use
  Company Number: CH-PFIZER INC-2018435036

PATIENT
  Age: 37 Year
  Sex: Male

DRUGS (2)
  1. TEMESTA [LORAZEPAM] [Suspect]
     Active Substance: LORAZEPAM
     Dosage: 10 MG, SINGLE (10 TABLETS OF 1 MG AT ONCE)
     Route: 048
     Dates: start: 20181011, end: 20181011
  2. SEROQUEL [Suspect]
     Active Substance: QUETIAPINE FUMARATE
     Dosage: 750 MG, SINGLE (750 MG OF SEROQUEL AT ONCE)
     Route: 048
     Dates: start: 20181011, end: 20181011

REACTIONS (4)
  - Somnolence [Recovered/Resolved]
  - Intentional overdose [Unknown]
  - Altered state of consciousness [Recovered/Resolved]
  - Tachycardia [Recovered/Resolved]

NARRATIVE: CASE EVENT DATE: 20181011
